FAERS Safety Report 9512167 (Version 1)
Quarter: 2013Q1

REPORT INFORMATION
  Report Type: Spontaneous
  Country: US (occurrence: None)
  Receive Date: 20130305
  Receipt Date: 20130305
  Transmission Date: 20140127
  Serious: Yes (Other)
  Sender: FDA-Public Use
  Company Number: 163-21880-12092332

PATIENT
  Age: 62 Year
  Sex: Female

DRUGS (8)
  1. REVLIMID [Suspect]
     Indication: MYELOFIBROSIS
     Dosage: 10 MG, 1 IN 1 D, PO
     Route: 048
     Dates: start: 20090520
  2. VITAMIN B12 (CYANOCOBALAMIN) (UNKNOWN) [Concomitant]
  3. ASPIRIN (ACETYLSALICYLIC ACID) (UNKNOWN) (ACETYLSALICYLIC ACID) [Concomitant]
  4. CALCIUM WITH VITAMIN D (CALCIUM WITH VITAMIN D) (UNKNOWN) [Concomitant]
  5. MULTIVITAMINS (MULTIVITAMINS) (UNKNOWN) [Concomitant]
  6. VITAMIN D (ERGOCALCIFEROL) (UNKNOWN) [Concomitant]
  7. MAGNESIUM (MAGNESIUM) (UNKNOWN) [Concomitant]
  8. HYDROXYUREA (HYDROXYCARBAMIDE) (UNKNOWN) [Concomitant]

REACTIONS (2)
  - Platelet count increased [None]
  - White blood cell count decreased [None]
